FAERS Safety Report 5850238-1 (Version None)
Quarter: 2008Q3

REPORT INFORMATION
  Report Type: 
  Country: None (occurrence: None)
  Receive Date: 20080819
  Receipt Date: 20080812
  Transmission Date: 20090109
  Serious: Yes (Death, Hospitalization)
  Sender: FDA-Public Use
  Company Number: PHRM2008FR00853

PATIENT
  Sex: Male

DRUGS (5)
  1. GLEEVEC [Suspect]
     Indication: ACUTE LYMPHOCYTIC LEUKAEMIA
     Dosage: 400 MG DAILY
     Route: 048
  2. GLEEVEC [Suspect]
     Dosage: 600 MG
     Route: 048
     Dates: start: 20071212, end: 20071222
  3. GLEEVEC [Suspect]
     Dosage: 600 MG
     Dates: start: 20080117, end: 20080121
  4. GLEEVEC [Suspect]
     Dosage: 200 MG
     Dates: start: 20080122
  5. METHOTREXATE SODIUM [Suspect]
     Indication: ACUTE LYMPHOCYTIC LEUKAEMIA
     Dosage: 1 G DAILY
     Dates: start: 20080118

REACTIONS (10)
  - BONE MARROW FAILURE [None]
  - DERMATITIS EXFOLIATIVE [None]
  - FACE OEDEMA [None]
  - LUNG DISORDER [None]
  - MUCOSAL INFLAMMATION [None]
  - MULTI-ORGAN FAILURE [None]
  - PRURITUS [None]
  - RENAL TUBULAR NECROSIS [None]
  - STOMATITIS [None]
  - TOXIC EPIDERMAL NECROLYSIS [None]
